FAERS Safety Report 10452908 (Version 1)
Quarter: 2014Q3

REPORT INFORMATION
  Report Type: Spontaneous
  Country: DE (occurrence: DE)
  Receive Date: 20140915
  Receipt Date: 20140915
  Transmission Date: 20150326
  Serious: Yes (Hospitalization)
  Sender: FDA-Public Use
  Company Number: CHPA2014DE011913

PATIENT
  Age: 16 Year
  Sex: Female

DRUGS (1)
  1. DEXTROMETHORPHAN UNKNOWN [Suspect]
     Active Substance: DEXTROMETHORPHAN
     Indication: DRUG ABUSE
     Dosage: UNK
     Route: 048
     Dates: start: 20140713

REACTIONS (4)
  - Vomiting [Recovered/Resolved]
  - Drug abuse [Recovered/Resolved]
  - Dizziness [Recovered/Resolved]
  - Nausea [Recovered/Resolved]

NARRATIVE: CASE EVENT DATE: 20140713
